FAERS Safety Report 19154615 (Version 8)
Quarter: 2021Q3

REPORT INFORMATION
  Report Type: Spontaneous
  Country: US (occurrence: US)
  Receive Date: 20210419
  Receipt Date: 20210830
  Transmission Date: 20211014
  Serious: Yes (Hospitalization, Other)
  Sender: FDA-Public Use
  Company Number: US-BRISTOL-MYERS SQUIBB COMPANY-BMS-2021-037271

PATIENT
  Age: 29 Year
  Sex: Female
  Weight: 79 kg

DRUGS (4)
  1. AVELUMAB [Suspect]
     Active Substance: AVELUMAB
     Indication: SOFT TISSUE SARCOMA
     Dosage: 800 MILLIGRAM Q2WK
     Route: 042
     Dates: start: 20201117, end: 20210223
  2. PEPOSERTIB. [Suspect]
     Active Substance: PEPOSERTIB
     Indication: SOFT TISSUE SARCOMA
     Dosage: 250 MILLIGRAM, 0.5 TABLET
     Route: 048
     Dates: start: 20201117, end: 20210225
  3. ELIQUIS [Suspect]
     Active Substance: APIXABAN
     Indication: DEEP VEIN THROMBOSIS
     Dosage: 10 MG
     Route: 048
     Dates: start: 20201214
  4. OXACILLIN [Concomitant]
     Active Substance: OXACILLIN SODIUM
     Indication: PRODUCT USED FOR UNKNOWN INDICATION
     Dosage: UNK
     Route: 065
     Dates: end: 20210403

REACTIONS (11)
  - Hypokalaemia [Recovered/Resolved]
  - Hypophosphataemia [Recovered/Resolved]
  - Constipation [Recovered/Resolved]
  - Hypocalcaemia [Recovered/Resolved]
  - Pulmonary alveolar haemorrhage [Recovered/Resolved]
  - Anaemia [Recovered/Resolved]
  - Hypomagnesaemia [Recovered/Resolved]
  - Dry eye [Recovered/Resolved]
  - Intentional product use issue [Unknown]
  - Hypovolaemia [Recovered/Resolved]
  - Nausea [Recovered/Resolved]

NARRATIVE: CASE EVENT DATE: 20210319
